FAERS Safety Report 9162076 (Version 1)
Quarter: 2013Q1

REPORT INFORMATION
  Report Type: Spontaneous
  Country: JP (occurrence: None)
  Receive Date: 20130222
  Receipt Date: 20130222
  Transmission Date: 20140127
  Serious: Yes (Hospitalization, Other)
  Sender: FDA-Public Use
  Company Number: ADR-2013-00287

PATIENT
  Age: 41 Year
  Sex: Male

DRUGS (6)
  1. GABALON [Suspect]
     Indication: ENCEPHALITIS
  2. PRIMIDONE FINE GRANULES 0.12 GRAM [Concomitant]
  3. RIVOTRIL FINE GRANULE 1.5 GRAM [Concomitant]
  4. GABAPEN 500 MG [Concomitant]
  5. ARTANE [Concomitant]
  6. CEFMETAZON 2 GRAMS [Concomitant]

REACTIONS (8)
  - Drug effect decreased [None]
  - Muscle spasticity [None]
  - Device leakage [None]
  - Device damage [None]
  - Pneumonia aspiration [None]
  - Depressed level of consciousness [None]
  - Drug effect increased [None]
  - Muscular weakness [None]
